FAERS Safety Report 20770019 (Version 1)
Quarter: 2022Q2

REPORT INFORMATION
  Report Type: Spontaneous
  Country: JP (occurrence: JP)
  Receive Date: 20220429
  Receipt Date: 20220429
  Transmission Date: 20220721
  Serious: Yes (Other)
  Sender: FDA-Public Use
  Company Number: JP-BAYER-2022A060213

PATIENT
  Age: 66 Year
  Sex: Male

DRUGS (10)
  1. VERICIGUAT HYDROCHLORIDE [Suspect]
     Active Substance: VERICIGUAT HYDROCHLORIDE
     Indication: Cardiac failure acute
     Dosage: 2.5 MG, QD
     Route: 048
     Dates: start: 20220323, end: 20220401
  2. AZOSEMIDE [Concomitant]
     Active Substance: AZOSEMIDE
     Dosage: 30 MILLIGRAM, ONCE
  3. SPIRONOLACTONE [Concomitant]
     Active Substance: SPIRONOLACTONE
     Dosage: 25 MG 2 TABLETS ONCE
  4. SAMSCA [Concomitant]
     Active Substance: TOLVAPTAN
     Dosage: 15 MG ONE TABLET ONCE
  5. CANDESARTAN [Concomitant]
     Active Substance: CANDESARTAN
     Dosage: 4 MG, ONCE
  6. CARVEDILOL [Concomitant]
     Active Substance: CARVEDILOL
     Dosage: 2.5 MG ONE TABLET ONCE
  7. JARDIANCE [Concomitant]
     Active Substance: EMPAGLIFLOZIN
     Dosage: 10 MG ONE TABLET ONCE
  8. PIMOBENDAN [Concomitant]
     Active Substance: PIMOBENDAN
     Dosage: 5MG ONE TABLET TWICE
  9. FUROSEMIDE [Concomitant]
     Active Substance: FUROSEMIDE
     Dosage: 40 MG ONE TABLET ONCE
  10. PREDONINE [Concomitant]
     Active Substance: PREDNISOLONE
     Dosage: 5 MG ONE TABLET ONCE

REACTIONS (4)
  - Rash [Recovered/Resolved]
  - Erythema [Recovered/Resolved]
  - Pruritus [Recovered/Resolved]
  - Off label use [Unknown]

NARRATIVE: CASE EVENT DATE: 20220331
